FAERS Safety Report 7496508-5 (Version None)
Quarter: 2011Q2

REPORT INFORMATION
  Report Type: 
  Country: None (occurrence: None)
  Receive Date: 20110523
  Receipt Date: 20110509
  Transmission Date: 20111010
  Serious: Yes (Other)
  Sender: FDA-Public Use
  Company Number: CA-ROCHE-777546

PATIENT
  Sex: Male

DRUGS (9)
  1. ANTI-THYMOCYTE GLOBULIN NOS [Concomitant]
  2. SEPTRA [Concomitant]
  3. MYCOPHENOLATE MOFETIL [Suspect]
     Indication: RENAL TRANSPLANT
     Route: 065
  4. URSODIOL [Concomitant]
  5. PANTOLOC [Concomitant]
  6. NYSTATIN [Concomitant]
  7. SOLU-MEDROL [Concomitant]
  8. COLACE [Concomitant]
  9. ENOXAPARIN [Concomitant]

REACTIONS (3)
  - VASCULAR CALCIFICATION [None]
  - OLIGURIA [None]
  - HYPOTENSION [None]
